FAERS Safety Report 20153358 (Version 1)
Quarter: 2021Q4

REPORT INFORMATION
  Report Type: Spontaneous
  Country: FR (occurrence: None)
  Receive Date: 20211206
  Receipt Date: 20211206
  Transmission Date: 20220303
  Serious: Yes (Hospitalization)
  Sender: FDA-Public Use
  Company Number: 2021A836035

PATIENT
  Age: 87 Year
  Sex: Female
  Weight: 53 kg

DRUGS (3)
  1. QUETIAPINE [Suspect]
     Active Substance: QUETIAPINE
     Indication: Product administration error
     Dosage: 2 CP DE 200 MG EN PRISE UNIQUE400.0MG ONCE/SINGLE ADMINISTRATION
     Route: 048
     Dates: start: 20211109, end: 20211109
  2. LORAZEPAM [Suspect]
     Active Substance: LORAZEPAM
     Indication: Product administration error
     Dosage: 1.5 CP DE 1 MG EN UNE PRISE UNIQUE1.5MG ONCE/SINGLE ADMINISTRATION
     Route: 048
     Dates: start: 20211109, end: 20211109
  3. CYAMEMAZINE [Suspect]
     Active Substance: CYAMEMAZINE
     Indication: Product administration error
     Dosage: 20 GOUTTES EN 1 PRISE UNIQUE20.0GTT ONCE/SINGLE ADMINISTRATION
     Route: 048
     Dates: end: 20211109

REACTIONS (2)
  - Product administration error [Recovered/Resolved]
  - Coma [Recovered/Resolved]

NARRATIVE: CASE EVENT DATE: 20211109
